FAERS Safety Report 23508364 (Version 2)
Quarter: 2024Q1

REPORT INFORMATION
  Report Type: Spontaneous
  Country: US (occurrence: US)
  Receive Date: 20240209
  Receipt Date: 20240305
  Transmission Date: 20240410
  Serious: Yes (Other)
  Sender: FDA-Public Use
  Company Number: US-TEVA-VS-3153870

PATIENT
  Age: 63 Year
  Sex: Female

DRUGS (7)
  1. MINOCYCLINE [Suspect]
     Active Substance: MINOCYCLINE HYDROCHLORIDE
     Indication: Lyme arthritis
     Dosage: FOR TEN DAYS
     Route: 065
  2. MALARONE [Concomitant]
     Active Substance: ATOVAQUONE\PROGUANIL HYDROCHLORIDE
     Indication: Lyme arthritis
     Route: 065
  3. LAMICTAL [Suspect]
     Active Substance: LAMOTRIGINE
     Indication: Lyme arthritis
     Dosage: FOR FIVE DAYS
     Route: 065
  4. FLAGYL [Suspect]
     Active Substance: METRONIDAZOLE\METRONIDAZOLE HYDROCHLORIDE
     Indication: Lyme arthritis
     Dosage: FOR TEN DAYS
     Route: 065
  5. Artemisinins [Concomitant]
     Indication: Lyme arthritis
     Route: 065
  6. BACTRIM [Suspect]
     Active Substance: SULFAMETHOXAZOLE\TRIMETHOPRIM
     Indication: Lyme arthritis
     Dosage: FOR FIVE DAYS
     Route: 065
  7. CEFDINIR [Suspect]
     Active Substance: CEFDINIR
     Indication: Lyme arthritis
     Dosage: FOR TEN DAYS
     Route: 065

REACTIONS (3)
  - Drug ineffective [Unknown]
  - Cholestatic liver injury [Recovering/Resolving]
  - Vanishing bile duct syndrome [Recovering/Resolving]
